FAERS Safety Report 6550947-5 (Version None)
Quarter: 2010Q1

REPORT INFORMATION
  Report Type: 
  Country: None (occurrence: None)
  Receive Date: 20100125
  Receipt Date: 20100111
  Transmission Date: 20100710
  Serious: Yes (Other)
  Sender: FDA-Public Use
  Company Number: AU-MYLANLABS-2010S1000427

PATIENT
  Age: 74 Year
  Sex: Male

DRUGS (3)
  1. AMLODIPINE [Suspect]
     Dosage: 10MG DAILY
  2. IMATINIB [Interacting]
     Indication: CHRONIC MYELOID LEUKAEMIA
     Dosage: 400 MG TWICE DAILY. MEAN ACTUAL DAILY DOSE OF 800MG
  3. ATORVASTATIN CALCIUM [Concomitant]
     Dosage: 40MG DAILY

REACTIONS (4)
  - DRUG INTERACTION [None]
  - NAUSEA [None]
  - NEUROPATHY PERIPHERAL [None]
  - PERIORBITAL OEDEMA [None]
